FAERS Safety Report 4720683-6 (Version None)
Quarter: 2005Q3

REPORT INFORMATION
  Report Type: 
  Country: None (occurrence: None)
  Receive Date: 20050721
  Receipt Date: 20050708
  Transmission Date: 20060218
  Serious: Yes (Death, Hospitalization)
  Sender: FDA-Public Use
  Company Number: US-JNJFOC-20050702193

PATIENT
  Age: 39 Year
  Sex: Male

DRUGS (1)
  1. MOTRIN [Suspect]
     Indication: MUSCULOSKELETAL PAIN
     Dosage: UNKNOWN

REACTIONS (4)
  - MULTI-ORGAN FAILURE [None]
  - SEPSIS [None]
  - STEVENS-JOHNSON SYNDROME [None]
  - TOXIC EPIDERMAL NECROLYSIS [None]
